FAERS Safety Report 6495549-4 (Version None)
Quarter: 2009Q4

REPORT INFORMATION
  Report Type: 
  Country: None (occurrence: None)
  Receive Date: 20091214
  Receipt Date: 20090710
  Transmission Date: 20100525
  Serious: No
  Sender: FDA-Public Use
  Company Number: US-BRISTOL-MYERS SQUIBB COMPANY-14698237

PATIENT
  Age: 2 Decade
  Sex: Female

DRUGS (4)
  1. ABILIFY [Suspect]
     Indication: PANIC DISORDER
  2. ABILIFY [Suspect]
     Indication: MAJOR DEPRESSION
  3. ZOLOFT [Suspect]
     Indication: PANIC DISORDER
  4. ZOLOFT [Suspect]
     Indication: MAJOR DEPRESSION

REACTIONS (2)
  - APPETITE DISORDER [None]
  - WEIGHT INCREASED [None]
